FAERS Safety Report 5822244-4 (Version None)
Quarter: 2008Q3

REPORT INFORMATION
  Report Type: 
  Country: None (occurrence: None)
  Receive Date: 20080725
  Receipt Date: 20080723
  Transmission Date: 20090109
  Serious: Yes (Life-Threatening, Disabling, Congenital Anomaly, Other)
  Sender: FDA-Public Use
  Company Number: JP-ABBOTT-01P-087-0103873-00

PATIENT
  Sex: Male

DRUGS (3)
  1. BLOPRESS TABLETS [Suspect]
     Indication: DRUG EXPOSURE DURING PREGNANCY
     Route: 064
  2. BLOPRESS TABLETS [Suspect]
  3. NEORAL [Suspect]
     Indication: DRUG EXPOSURE DURING PREGNANCY
     Route: 064

REACTIONS (48)
  - ANURIA [None]
  - ASPHYXIA [None]
  - BALANCE DISORDER [None]
  - BLOOD ANTIDIURETIC HORMONE INCREASED [None]
  - BODY HEIGHT BELOW NORMAL [None]
  - CEREBELLAR ATROPHY [None]
  - CEREBRAL VENTRICLE DILATATION [None]
  - CLONUS [None]
  - CONGENITAL CUTIS LAXA [None]
  - CONGENITAL MUSCULOSKELETAL ANOMALY [None]
  - CONVULSION [None]
  - CRANIOSYNOSTOSIS [None]
  - DEVELOPMENTAL DELAY [None]
  - DRUG EXPOSURE DURING PREGNANCY [None]
  - DYSMORPHISM [None]
  - EAR MALFORMATION [None]
  - ELECTROENCEPHALOGRAM ABNORMAL [None]
  - EPILEPSY [None]
  - FAILURE TO THRIVE [None]
  - FEBRILE CONVULSION [None]
  - GLOMERULAR VASCULAR DISORDER [None]
  - HEART RATE IRREGULAR [None]
  - HIGH ARCHED PALATE [None]
  - HYDRONEPHROSIS [None]
  - HYPOTENSION [None]
  - JOINT CONTRACTURE [None]
  - JOINT RANGE OF MOTION DECREASED [None]
  - KAWASAKI'S DISEASE [None]
  - LOW SET EARS [None]
  - MENTAL RETARDATION [None]
  - MOTOR DYSFUNCTION [None]
  - NEONATAL RESPIRATORY DISTRESS SYNDROME [None]
  - NEPHROGENIC DIABETES INSIPIDUS [None]
  - OEDEMA [None]
  - PARTIAL SEIZURES [None]
  - PATENT DUCTUS ARTERIOSUS [None]
  - PERIVENTRICULAR LEUKOMALACIA [None]
  - PNEUMOTHORAX [None]
  - POLYDIPSIA [None]
  - PREMATURE BABY [None]
  - PULMONARY HYPERTENSION [None]
  - PULMONARY HYPOPLASIA [None]
  - RENAL FAILURE [None]
  - RENAL TUBULAR DISORDER [None]
  - RESPIRATORY FAILURE [None]
  - URINE FLOW DECREASED [None]
  - URINE OSMOLARITY DECREASED [None]
  - URINE POTASSIUM INCREASED [None]
